FAERS Safety Report 23880427 (Version 1)
Quarter: 2024Q2

REPORT INFORMATION
  Report Type: Spontaneous
  Country: TN (occurrence: TN)
  Receive Date: 20240521
  Receipt Date: 20240521
  Transmission Date: 20240715
  Serious: Yes (Hospitalization)
  Sender: FDA-Public Use
  Company Number: TN-CMP PHARMA-2024CMP00017

PATIENT
  Age: 23 Year
  Sex: Female

DRUGS (2)
  1. AMLODIPINE [Suspect]
     Active Substance: AMLODIPINE BESYLATE
     Dosage: 200 MG
     Route: 048
  2. PERINDOPRIL ARGININE [Suspect]
     Active Substance: PERINDOPRIL ARGININE
     Dosage: 100 MG
     Route: 048

REACTIONS (7)
  - Metabolic acidosis [Recovered/Resolved]
  - Vasoplegia syndrome [Recovered/Resolved]
  - Atrial tachycardia [Recovered/Resolved]
  - Hyperlactacidaemia [Recovered/Resolved]
  - Acute kidney injury [Recovered/Resolved]
  - Hepatic function abnormal [Recovered/Resolved]
  - Pulmonary oedema [Recovered/Resolved]
